FAERS Safety Report 8915498 (Version 1)
Quarter: 2012Q4

REPORT INFORMATION
  Report Type: 
  Country: US (occurrence: US)
  Receive Date: 20121119
  Receipt Date: 20121119
  Transmission Date: 20130627
  Serious: Yes (Other)
  Sender: FDA-Public Use
  Company Number: US-PFIZER INC-2012284431

PATIENT
  Age: 80 Year
  Sex: Female
  Weight: 72.11 kg

DRUGS (1)
  1. XALATAN [Suspect]
     Indication: INTRAOCULAR PRESSURE
     Dosage: UNK, daily
     Route: 047

REACTIONS (1)
  - Lung neoplasm malignant [Unknown]
